FAERS Safety Report 9377915 (Version 1)
Quarter: 2013Q3

REPORT INFORMATION
  Report Type: Spontaneous
  Country: BR (occurrence: BR)
  Receive Date: 20130701
  Receipt Date: 20130701
  Transmission Date: 20140515
  Serious: Yes (Other)
  Sender: FDA-Public Use
  Company Number: PHHY2013BR065251

PATIENT
  Age: 12 Year
  Sex: Male

DRUGS (4)
  1. RITALINA [Suspect]
     Indication: PSYCHOMOTOR HYPERACTIVITY
     Dosage: UNK UKN, UNK
     Route: 048
  2. TRILEPTAL [Suspect]
     Indication: CONVULSION
     Dosage: 1.5 DF, BID
     Route: 048
  3. TRILEPTAL [Suspect]
     Dosage: 2.5 DF, QD
  4. GARDENAL [Suspect]
     Indication: CONVULSION
     Dosage: 1 DF, QD
     Route: 048

REACTIONS (1)
  - Tuberous sclerosis [Recovering/Resolving]
